FAERS Safety Report 6292375-6 (Version None)
Quarter: 2009Q3

REPORT INFORMATION
  Report Type: 
  Country: None (occurrence: None)
  Receive Date: 20090731
  Receipt Date: 19950601
  Transmission Date: 20100115
  Serious: Yes (Hospitalization)
  Sender: FDA-Public Use
  Company Number: PHBS1995US05365

PATIENT
  Sex: Female
  Weight: 46 kg

DRUGS (2)
  1. FAMVIR [Suspect]
     Indication: HERPES SIMPLEX
     Dosage: 500 MG, UNK
     Route: 048
     Dates: start: 19941128, end: 19941129
  2. BIRTH CONTROL PILLS (NOT SPECIFIED) [Concomitant]
     Dosage: UNK, UNK

REACTIONS (2)
  - PURPURA [None]
  - THROMBOCYTOPENIC PURPURA [None]
